FAERS Safety Report 4421410-2 (Version None)
Quarter: 2004Q3

REPORT INFORMATION
  Report Type: 
  Country: None (occurrence: None)
  Receive Date: 20040709
  Receipt Date: 20040608
  Transmission Date: 20050211
  Serious: No
  Sender: FDA-Public Use
  Company Number: 2004S1000119

PATIENT
  Age: 70 Year
  Sex: Male
  Weight: 127 kg

DRUGS (13)
  1. CUBICIN [Suspect]
     Indication: STAPHYLOCOCCAL BACTERAEMIA
     Dosage: 650 MG; Q24H; IV
     Route: 042
     Dates: start: 20040420
  2. HALDOL [Concomitant]
  3. COMBIVENT [Concomitant]
  4. FENTANYL [Concomitant]
  5. AMIODARONE HCL [Concomitant]
  6. PANTOPRAZOLE [Concomitant]
  7. HEPARIN [Concomitant]
  8. ATIVAN [Concomitant]
  9. INSULIN [Concomitant]
  10. NOREPINEPHRINE [Concomitant]
  11. METOPROLOL [Concomitant]
  12. MEROPENEM [Concomitant]
  13. FLUCONAZOLE [Concomitant]

REACTIONS (1)
  - LEUKOPENIA [None]
